FAERS Safety Report 7553353-X (Version None)
Quarter: 2011Q2

REPORT INFORMATION
  Report Type: 
  Country: None (occurrence: None)
  Receive Date: 20110617
  Receipt Date: 20110609
  Transmission Date: 20111010
  Serious: Yes (Hospitalization, Other)
  Sender: FDA-Public Use
  Company Number: US-ASTRAZENECA-2009UW09408

PATIENT
  Age: 543 Month
  Sex: Male
  Weight: 90.7 kg

DRUGS (24)
  1. THORAZINE [Concomitant]
     Dates: start: 20040101
  2. SYNTHROID [Concomitant]
     Indication: THYROID DISORDER
  3. SEROQUEL [Suspect]
     Indication: ANXIETY
     Dosage: UP TO 1600 MG
     Route: 048
     Dates: start: 20030901
  4. SEROQUEL [Suspect]
     Route: 048
  5. FENALTOIN 3 [Concomitant]
  6. SEROQUEL [Suspect]
     Indication: MAJOR DEPRESSION
     Dosage: UP TO 1600 MG
     Route: 048
     Dates: start: 20030901
  7. SEROQUEL [Suspect]
     Route: 048
  8. NUVIGIL [Concomitant]
     Indication: AMNESIA
  9. GABAPENTIN [Concomitant]
     Indication: DEPRESSION
  10. NUTROPIN HCG [Concomitant]
     Indication: HYPOTHALAMO-PITUITARY DISORDER
  11. GEODON [Concomitant]
     Dosage: 80 MG
     Dates: start: 20090101
  12. PROPRANOLOL [Concomitant]
     Indication: HYPERTENSION
  13. GABAPENTIN [Concomitant]
     Indication: HEAD INJURY
  14. VISTERIL [Concomitant]
     Indication: ANXIETY
  15. TRAZODONE HCL [Concomitant]
     Indication: SLEEP DISORDER
  16. SEROQUEL [Suspect]
     Route: 048
  17. SEROQUEL [Suspect]
     Route: 048
  18. SEROQUEL [Suspect]
     Route: 048
  19. SEROQUEL [Suspect]
     Indication: DEPRESSION
     Dosage: UP TO 1600 MG
     Route: 048
     Dates: start: 20030901
  20. SEROQUEL [Suspect]
     Route: 048
  21. SEROQUEL [Suspect]
     Route: 048
  22. SEROQUEL [Suspect]
     Indication: TRAUMATIC BRAIN INJURY
     Dosage: UP TO 1600 MG
     Route: 048
     Dates: start: 20030901
  23. SEROQUEL [Suspect]
     Route: 048
  24. WARFERIN [Concomitant]
     Indication: COAGULOPATHY
     Dosage: 7.5 FOUR DAYS PER WEEK AND 8.0 THREE DAYS PER WEEK DAILY

REACTIONS (9)
  - BLOOD TRIGLYCERIDES INCREASED [None]
  - CONVULSION [None]
  - TYPE 2 DIABETES MELLITUS [None]
  - HEAD INJURY [None]
  - GASTRIC DISORDER [None]
  - DRUG INEFFECTIVE [None]
  - OBESITY [None]
  - GASTRIC BYPASS [None]
  - WEIGHT INCREASED [None]
